FAERS Safety Report 11425599 (Version 1)
Quarter: 2015Q3

REPORT INFORMATION
  Report Type: Spontaneous
  Country: US (occurrence: US)
  Receive Date: 20150827
  Receipt Date: 20150827
  Transmission Date: 20151125
  Serious: Yes (Hospitalization)
  Sender: FDA-Public Use
  Company Number: US-SA-2015SA129318

PATIENT
  Sex: Female

DRUGS (3)
  1. PRALUENT [Suspect]
     Active Substance: ALIROCUMAB
     Indication: BLOOD CHOLESTEROL
     Dosage: FREQUENCY: EVERY 2 WEEKS
     Route: 058
     Dates: start: 20150803
  2. ALIROCUMAB PREFILLED PEN [Concomitant]
     Dates: start: 20150803
  3. MICARDIS [Concomitant]
     Active Substance: TELMISARTAN
     Dates: start: 2015

REACTIONS (4)
  - Tachycardia [Not Recovered/Not Resolved]
  - Condition aggravated [Not Recovered/Not Resolved]
  - Blood pressure increased [Not Recovered/Not Resolved]
  - Chest pain [Not Recovered/Not Resolved]

NARRATIVE: CASE EVENT DATE: 201508
